FAERS Safety Report 23542175 (Version 1)
Quarter: 2024Q1

REPORT INFORMATION
  Report Type: Spontaneous
  Country: US (occurrence: None)
  Receive Date: 20240220
  Receipt Date: 20240220
  Transmission Date: 20240410
  Serious: No
  Sender: FDA-Public Use
  Company Number: US-ROCHE-3389513

PATIENT
  Age: 21 Year
  Sex: Female
  Weight: 56.5 kg

DRUGS (4)
  1. ROZLYTREK [Suspect]
     Active Substance: ENTRECTINIB
     Indication: Glioma
     Dosage: 400MG SIX DAYS A WEEK ;ONGOING: YES
     Route: 048
     Dates: start: 201912
  2. GABAPENTIN [Concomitant]
     Active Substance: GABAPENTIN
     Dosage: ONGOING
     Route: 048
     Dates: start: 202004
  3. ALLOPURINOL [Concomitant]
     Active Substance: ALLOPURINOL
     Dosage: ONGOING
     Route: 048
     Dates: start: 20230401
  4. NORGESTIMATE AND ETHINYL ESTRADIOL [Concomitant]
     Active Substance: ETHINYL ESTRADIOL\NORGESTIMATE
     Indication: Contraception
     Dosage: 0.25/0.35 MG DAILY, ONGOING- UNKNOWN

REACTIONS (4)
  - Maternal exposure before pregnancy [Unknown]
  - Off label use [Unknown]
  - No adverse event [Unknown]
  - Maternal exposure during pregnancy [Unknown]

NARRATIVE: CASE EVENT DATE: 20230711
